FAERS Safety Report 24947591 (Version 2)
Quarter: 2025Q1

REPORT INFORMATION
  Report Type: Spontaneous
  Country: US (occurrence: US)
  Receive Date: 20250210
  Receipt Date: 20250304
  Transmission Date: 20250409
  Serious: Yes (Life-Threatening, Hospitalization, Other)
  Sender: AUROBINDO
  Company Number: US-AUROBINDO-AUR-APL-2025-003561

PATIENT
  Age: 3 Decade
  Sex: Male

DRUGS (2)
  1. LEVETIRACETAM [Suspect]
     Active Substance: LEVETIRACETAM
     Indication: Seizure
     Route: 065
  2. CARBAMAZEPINE [Suspect]
     Active Substance: CARBAMAZEPINE
     Indication: Seizure
     Route: 065

REACTIONS (6)
  - Drug reaction with eosinophilia and systemic symptoms [Recovered/Resolved]
  - Acute respiratory failure [Recovered/Resolved]
  - Liver injury [Recovered/Resolved]
  - Pyrexia [Unknown]
  - Rash morbilliform [Unknown]
  - Abdominal pain [Unknown]
